FAERS Safety Report 6116655-X (Version None)
Quarter: 2009Q1

REPORT INFORMATION
  Report Type: 
  Country: None (occurrence: None)
  Receive Date: 20090314
  Receipt Date: 20081218
  Transmission Date: 20090719
  Serious: No
  Sender: FDA-Public Use
  Company Number: US-ABBOTT-08P-163-0494517-00

PATIENT
  Sex: Female

DRUGS (1)
  1. HUMIRA [Suspect]
     Indication: RHEUMATOID ARTHRITIS
     Dates: start: 20081204

REACTIONS (12)
  - ABDOMINAL DISTENSION [None]
  - AUTOIMMUNE DISORDER [None]
  - BASEDOW'S DISEASE [None]
  - BLOOD GLUCOSE INCREASED [None]
  - CONSTIPATION [None]
  - DIZZINESS [None]
  - DYSGEUSIA [None]
  - FATIGUE [None]
  - FIBROMYALGIA [None]
  - MALAISE [None]
  - NAUSEA [None]
  - PAROSMIA [None]
